FAERS Safety Report 12538204 (Version 1)
Quarter: 2016Q3

REPORT INFORMATION
  Report Type: Spontaneous
  Country: DE (occurrence: DE)
  Receive Date: 20160707
  Receipt Date: 20160707
  Transmission Date: 20161109
  Serious: Yes (Congenital Anomaly, Other)
  Sender: FDA-Public Use
  Company Number: DE-ALLERGAN-1661989US

PATIENT
  Sex: Female
  Weight: 2.6 kg

DRUGS (2)
  1. FOLIO [Concomitant]
     Active Substance: FOLIC ACID
     Indication: PROPHYLAXIS OF NEURAL TUBE DEFECT
     Route: 064
  2. LUMIGAN [Suspect]
     Active Substance: BIMATOPROST
     Indication: MATERNAL EXPOSURE TIMING UNSPECIFIED
     Dosage: UNK
     Route: 064
     Dates: start: 20150216, end: 20150415

REACTIONS (7)
  - Hypoplastic right heart syndrome [Not Recovered/Not Resolved]
  - Congenital pulmonary artery anomaly [Unknown]
  - Protein C deficiency [Not Recovered/Not Resolved]
  - Ventricular septal defect [Unknown]
  - Deep vein thrombosis [Recovered/Resolved]
  - Congenital pulmonary valve disorder [Unknown]
  - Congenital tricuspid valve atresia [Unknown]
